FAERS Safety Report 4701893-0 (Version None)
Quarter: 2005Q2

REPORT INFORMATION
  Report Type: 
  Country: None (occurrence: None)
  Receive Date: 20050627
  Receipt Date: 20050607
  Transmission Date: 20051028
  Serious: Yes (Other)
  Sender: FDA-Public Use
  Company Number: DSA_26577_2005

PATIENT
  Age: 72 Year
  Sex: Female
  Weight: 64.8644 kg

DRUGS (2)
  1. LORAZEPAM [Suspect]
     Indication: SLEEP DISORDER
     Dosage: 2 MG QHS PO
     Route: 048
     Dates: start: 19860101, end: 20030101
  2. TIAZEC [Concomitant]

REACTIONS (6)
  - ARTHRALGIA [None]
  - BRAIN DAMAGE [None]
  - HEADACHE [None]
  - NERVOUS SYSTEM DISORDER [None]
  - OSTEOARTHRITIS [None]
  - SPEECH DISORDER [None]
